FAERS Safety Report 4818552-6 (Version None)
Quarter: 2005Q4

REPORT INFORMATION
  Report Type: 
  Country: None (occurrence: None)
  Receive Date: 20051031
  Receipt Date: 20051020
  Transmission Date: 20060501
  Serious: Yes (Death, Life-Threatening, Hospitalization, Disabling, Other)
  Sender: FDA-Public Use
  Company Number: 2004EU001100

PATIENT
  Age: 31 Year
  Sex: Female
  Weight: 64 kg

DRUGS (8)
  1. PROGRAF [Suspect]
     Indication: RENAL TRANSPLANT
     Dosage: SEE IMAGE
     Dates: start: 20040316, end: 20040318
  2. PROGRAF [Suspect]
     Indication: RENAL TRANSPLANT
     Dosage: SEE IMAGE
     Dates: start: 20040318, end: 20040321
  3. CELLCEPT [Suspect]
     Indication: RENAL TRANSPLANT
     Dosage: 2.00 G, UID/QD, ORAL
     Route: 048
     Dates: start: 20040316
  4. SIMULECT [Concomitant]
  5. PREDNISONE [Concomitant]
  6. FUROSEMIDE [Concomitant]
  7. VANCOMYCIN [Concomitant]
  8. HEPARIN [Concomitant]

REACTIONS (19)
  - BACK PAIN [None]
  - BLINDNESS [None]
  - BRAIN DEATH [None]
  - BRAIN OEDEMA [None]
  - CEREBRAL HAEMORRHAGE [None]
  - COMA [None]
  - CONVULSION [None]
  - DIALYSIS [None]
  - DRUG TOXICITY [None]
  - ELECTROENCEPHALOGRAM ABNORMAL [None]
  - ENCEPHALITIS [None]
  - GRAFT COMPLICATION [None]
  - HEMIPLEGIA [None]
  - LEUKOENCEPHALOPATHY [None]
  - MYDRIASIS [None]
  - NEUROPATHY [None]
  - NUCLEAR MAGNETIC RESONANCE IMAGING BRAIN ABNORMAL [None]
  - RENAL TUBULAR NECROSIS [None]
  - URINE OUTPUT DECREASED [None]
